FAERS Safety Report 9563966 (Version 3)
Quarter: 2014Q2

REPORT INFORMATION
  Report Type: Spontaneous
  Country: US (occurrence: US)
  Receive Date: 20130928
  Receipt Date: 20140422
  Transmission Date: 20141212
  Serious: Yes (Other)
  Sender: FDA-Public Use
  Company Number: US-BAYER-2013-117320

PATIENT
  Age: 33 Year
  Sex: Female
  Weight: 69.39 kg

DRUGS (2)
  1. MIRENA [Suspect]
     Indication: CONTRACEPTION
     Dosage: 20 MCG/24HR, CONT
     Route: 015
     Dates: start: 20130925, end: 20130925
  2. MISOPROSTOL [Concomitant]
     Dosage: UNK

REACTIONS (4)
  - Uterine perforation [Recovered/Resolved]
  - Device deployment issue [None]
  - Device difficult to use [None]
  - Device misuse [None]
